FAERS Safety Report 4490075-6 (Version None)
Quarter: 2004Q4

REPORT INFORMATION
  Report Type: 
  Country: None (occurrence: None)
  Receive Date: 20041027
  Receipt Date: 20041011
  Transmission Date: 20050328
  Serious: No
  Sender: FDA-Public Use
  Company Number: A0529377A

PATIENT
  Age: 46 Year
  Sex: Female

DRUGS (5)
  1. NICORETTE [Suspect]
     Indication: EX-SMOKER
     Dosage: 2 MG TRANSBUCCAL
     Route: 002
     Dates: start: 19920101, end: 20041010
  2. NICODERM CQ [Suspect]
     Indication: EX-SMOKER
     Dosage: 21 MG TRANSDERMAL
     Route: 062
     Dates: start: 19920101, end: 19920101
  3. NICORETTE [Suspect]
     Indication: EX-SMOKER
     Dosage: 2 MG
     Dates: end: 20041010
  4. ESTROGEN [Concomitant]
  5. NICOTINE [Concomitant]

REACTIONS (3)
  - DEPENDENCE [None]
  - HIP SURGERY [None]
  - URTICARIA [None]
